FAERS Safety Report 17688221 (Version 11)
Quarter: 2021Q3

REPORT INFORMATION
  Report Type: Report from Study
  Country: CA (occurrence: CA)
  Receive Date: 20200421
  Receipt Date: 20210819
  Transmission Date: 20211014
  Serious: Yes (Other)
  Sender: FDA-Public Use
  Company Number: PHHY2019CA169685

PATIENT
  Age: 69 Year
  Sex: Female
  Weight: 96.4 kg

DRUGS (4)
  1. SANDOSTATIN LAR DEPOT [Suspect]
     Active Substance: OCTREOTIDE ACETATE
  2. SANDOSTATIN LAR DEPOT [Suspect]
     Active Substance: OCTREOTIDE ACETATE
  3. VITAMIN B12 [Concomitant]
     Active Substance: CYANOCOBALAMIN
     Indication: PRODUCT USED FOR UNKNOWN INDICATION
     Dosage: UNK
     Route: 065
  4. SANDOSTATIN LAR DEPOT [Suspect]
     Active Substance: OCTREOTIDE ACETATE
     Indication: CARCINOID TUMOUR
     Dosage: 20 MG, QMO (EVERY 4 WEEKS)
     Route: 030
     Dates: start: 20190715

REACTIONS (27)
  - Muscular weakness [Unknown]
  - Injection site swelling [Unknown]
  - Injection site discolouration [Unknown]
  - Weight increased [Unknown]
  - Diarrhoea [Unknown]
  - Underdose [Unknown]
  - Blood pressure systolic increased [Unknown]
  - Back pain [Unknown]
  - Dysuria [Unknown]
  - Gait disturbance [Recovering/Resolving]
  - Accidental exposure to product [Unknown]
  - Groin pain [Unknown]
  - Abdominal distension [Recovering/Resolving]
  - Abdominal pain [Recovering/Resolving]
  - Abdominal pain upper [Unknown]
  - Arthralgia [Unknown]
  - Cyst [Unknown]
  - Asthenia [Unknown]
  - Feeling hot [Unknown]
  - Feeling abnormal [Unknown]
  - Pain [Recovering/Resolving]
  - Needle issue [Unknown]
  - Product administration error [Unknown]
  - Blood pressure increased [Unknown]
  - Kidney infection [Unknown]
  - Faeces soft [Unknown]
  - Injection site pain [Recovering/Resolving]

NARRATIVE: CASE EVENT DATE: 2019
